FAERS Safety Report 9200952 (Version 1)
Quarter: 2013Q2

REPORT INFORMATION
  Report Type: Spontaneous
  Country: US (occurrence: US)
  Receive Date: 20130401
  Receipt Date: 20130401
  Transmission Date: 20140414
  Serious: Yes (Other)
  Sender: FDA-Public Use
  Company Number: US-JNJFOC-20130314101

PATIENT
  Sex: Male
  Weight: 88.45 kg

DRUGS (4)
  1. INVEGA [Suspect]
     Indication: ANXIETY
     Route: 048
     Dates: start: 2012, end: 2013
  2. INVEGA [Suspect]
     Indication: ANXIETY
     Route: 048
     Dates: start: 2013
  3. INVEGA [Suspect]
     Indication: DEPRESSION
     Route: 048
     Dates: start: 2012, end: 2013
  4. INVEGA [Suspect]
     Indication: DEPRESSION
     Route: 048
     Dates: start: 2013

REACTIONS (5)
  - Depression [Not Recovered/Not Resolved]
  - Expired drug administered [Not Recovered/Not Resolved]
  - Withdrawal syndrome [Not Recovered/Not Resolved]
  - Off label use [Not Recovered/Not Resolved]
  - Inappropriate schedule of drug administration [Not Recovered/Not Resolved]
